FAERS Safety Report 8893044 (Version 1)
Quarter: 2012Q4

REPORT INFORMATION
  Report Type: 
  Country: US (occurrence: US)
  Receive Date: 20121107
  Receipt Date: 20121107
  Transmission Date: 20130627
  Serious: No
  Sender: FDA-Public Use
  Company Number: US-AMGEN-USASP2011052905

PATIENT

DRUGS (9)
  1. ENBREL [Suspect]
     Indication: PRODUCT USED FOR UNKNOWN INDICATION
     Dosage: 50 mg, qwk
     Route: 058
  2. DICLOFENAC [Concomitant]
     Dosage: 100 mg, UNK
  3. WELLBUTRIN [Concomitant]
     Dosage: 100 mg, UNK
  4. VITAMIN E                          /00110501/ [Concomitant]
     Dosage: 400 IU, UNK
  5. VITAMIN C                          /00008001/ [Concomitant]
  6. FISH OIL [Concomitant]
  7. VITAMIN D /00107901/ [Concomitant]
     Dosage: 1000 IU, UNK
  8. CALCIUM PLUS D3 [Concomitant]
  9. MULTIVITAMIN                       /00097801/ [Concomitant]

REACTIONS (1)
  - Herpes zoster [Unknown]
